FAERS Safety Report 9180075 (Version 2)
Quarter: 2013Q2

REPORT INFORMATION
  Report Type: Spontaneous
  Country: US (occurrence: US)
  Receive Date: 20130321
  Receipt Date: 20130415
  Transmission Date: 20140414
  Serious: Yes (Other)
  Sender: FDA-Public Use
  Company Number: US-PFIZER INC-2013092463

PATIENT
  Age: 43 Year
  Sex: Female
  Weight: 73.02 kg

DRUGS (5)
  1. LYRICA [Suspect]
     Indication: NEURALGIA
     Dosage: 50 MG, 1X/DAY
     Route: 048
     Dates: start: 2012, end: 2012
  2. LYRICA [Suspect]
     Dosage: 50 MG, 2X/DAY
     Dates: start: 2012, end: 2012
  3. LYRICA [Suspect]
     Dosage: 200 MG, 2X/DAY
     Dates: start: 2012, end: 201212
  4. LYRICA [Suspect]
     Dosage: 50 MG, UNK
     Dates: start: 20130319
  5. LEXAPRO [Concomitant]
     Dosage: UNK

REACTIONS (6)
  - Swelling face [Unknown]
  - Weight increased [Unknown]
  - Constipation [Unknown]
  - Abdominal discomfort [Unknown]
  - Increased appetite [Unknown]
  - Pain [Unknown]
